FAERS Safety Report 24796183 (Version 3)
Quarter: 2025Q2

REPORT INFORMATION
  Report Type: Spontaneous
  Country: JP (occurrence: JP)
  Receive Date: 20250101
  Receipt Date: 20250418
  Transmission Date: 20250716
  Serious: Yes (Hospitalization, Other)
  Sender: ROCHE
  Company Number: JP-CHUGAI-2024045387

PATIENT
  Age: 79 Year
  Sex: Male
  Weight: 48.7 kg

DRUGS (9)
  1. ACTEMRA [Suspect]
     Active Substance: TOCILIZUMAB
     Indication: Rheumatoid arthritis
     Route: 058
     Dates: start: 20190213, end: 20200505
  2. ACTEMRA [Suspect]
     Active Substance: TOCILIZUMAB
     Route: 058
     Dates: start: 20200512, end: 20220928
  3. ACTEMRA [Suspect]
     Active Substance: TOCILIZUMAB
     Route: 058
     Dates: start: 20221004, end: 20230606
  4. ACTEMRA [Suspect]
     Active Substance: TOCILIZUMAB
     Route: 058
     Dates: start: 20230620, end: 20241217
  5. TACROLIMUS [Suspect]
     Active Substance: TACROLIMUS
     Indication: Product used for unknown indication
     Route: 048
     Dates: start: 20210330, end: 20241217
  6. OMEPRAZOLE [Concomitant]
     Active Substance: OMEPRAZOLE
  7. IGURATIMOD [Concomitant]
     Active Substance: IGURATIMOD
  8. AMLODIPINE [Concomitant]
     Active Substance: AMLODIPINE BESYLATE
  9. TENELIGLIPTIN [Concomitant]
     Active Substance: TENELIGLIPTIN

REACTIONS (5)
  - Pneumonia bacterial [Recovered/Resolved with Sequelae]
  - COVID-19 [Recovered/Resolved]
  - Drug level increased [Recovered/Resolved]
  - Off label use [Unknown]
  - Hypoxia [Recovered/Resolved]

NARRATIVE: CASE EVENT DATE: 20240809
